FAERS Safety Report 10006043 (Version 2)
Quarter: 2014Q2

REPORT INFORMATION
  Report Type: Spontaneous
  Country: US (occurrence: US)
  Receive Date: 20140313
  Receipt Date: 20140409
  Transmission Date: 20141212
  Serious: Yes (Death)
  Sender: FDA-Public Use
  Company Number: US-TEVA-467625USA

PATIENT
  Sex: Female

DRUGS (1)
  1. FENTORA [Suspect]
     Indication: BREAKTHROUGH PAIN
     Route: 002

REACTIONS (1)
  - Endometrial cancer metastatic [Fatal]
